FAERS Safety Report 8395695-4 (Version None)
Quarter: 2012Q2

REPORT INFORMATION
  Report Type: 
  Country: None (occurrence: None)
  Receive Date: 20120530
  Receipt Date: 20120308
  Transmission Date: 20120825
  Serious: No
  Sender: FDA-Public Use
  Company Number: US-GLAXOSMITHKLINE-A0969142A

PATIENT
  Age: 7 Year
  Sex: Female

DRUGS (4)
  1. SULFAMETHOXAZOLE AND TRIMETHOPRIM [Concomitant]
  2. NOVOLOG [Concomitant]
  3. SINGULAIR [Concomitant]
  4. VENTOLIN [Suspect]
     Indication: DYSPNOEA
     Dosage: 2PUFF FOUR TIMES PER DAY
     Route: 055
     Dates: start: 20110201

REACTIONS (5)
  - RASH [None]
  - RESPIRATORY DISORDER [None]
  - NONSPECIFIC REACTION [None]
  - PRODUCT QUALITY ISSUE [None]
  - FLUSHING [None]
